FAERS Safety Report 4710150-8 (Version None)
Quarter: 2005Q3

REPORT INFORMATION
  Report Type: 
  Country: None (occurrence: None)
  Receive Date: 20050707
  Receipt Date: 20050621
  Transmission Date: 20060218
  Serious: Yes (Death)
  Sender: FDA-Public Use
  Company Number: 2005BI007268

PATIENT
  Age: 69 Year
  Sex: Female

DRUGS (14)
  1. AMEVIVE [Suspect]
     Indication: PSORIASIS
     Dosage: 15 MG; QW; IM
     Route: 030
     Dates: start: 20050302, end: 20050302
  2. AMEVIVE [Suspect]
     Indication: PSORIASIS
     Dosage: 15 MG; QW; IM
     Route: 030
     Dates: start: 20040901
  3. STARLIX [Concomitant]
  4. AVALIDE [Concomitant]
  5. COREG [Concomitant]
  6. DIGITEK [Concomitant]
  7. SPIRONOLACTONE [Concomitant]
  8. ^ECTRON^ [Concomitant]
  9. CLONIDINE [Concomitant]
  10. CAPEX [Concomitant]
  11. TRIAMCINOLONE [Concomitant]
  12. ACCUPRIL [Concomitant]
  13. ASPIRIN [Concomitant]
  14. TRICOR [Concomitant]

REACTIONS (1)
  - SUDDEN DEATH [None]
